FAERS Safety Report 16084428 (Version 1)
Quarter: 2019Q1

REPORT INFORMATION
  Report Type: Spontaneous
  Country: US (occurrence: US)
  Receive Date: 20190318
  Receipt Date: 20190318
  Transmission Date: 20190418
  Serious: Yes (Hospitalization)
  Sender: FDA-Public Use
  Company Number: US-PFIZER INC-2019110288

PATIENT
  Age: 76 Year
  Sex: Female
  Weight: 89.36 kg

DRUGS (1)
  1. TRIAZOLAM. [Suspect]
     Active Substance: TRIAZOLAM
     Indication: INSOMNIA
     Dosage: 0.5 MG, 1X/DAY [TWO 0.25 MG TABLETS AT NIGHT BY MOUTH]
     Route: 048

REACTIONS (4)
  - Migraine [Unknown]
  - Withdrawal syndrome [Recovered/Resolved]
  - Dyskinesia [Recovered/Resolved]
  - Fall [Recovered/Resolved]
